FAERS Safety Report 12726426 (Version 6)
Quarter: 2017Q1

REPORT INFORMATION
  Report Type: Report from Study
  Country: US (occurrence: US)
  Receive Date: 20160908
  Receipt Date: 20170308
  Transmission Date: 20170428
  Serious: Yes (Hospitalization, Other)
  Sender: FDA-Public Use
  Company Number: PHEH2016US022603

PATIENT
  Age: 0 Day
  Sex: Male
  Weight: 9.4 kg

DRUGS (15)
  1. PRENATAL [Concomitant]
     Active Substance: VITAMINS
     Indication: FOETAL EXPOSURE DURING PREGNANCY
     Dosage: UNK
     Route: 064
  2. DHA [Concomitant]
     Active Substance: DIETARY SUPPLEMENT
     Indication: FOETAL EXPOSURE DURING PREGNANCY
     Dosage: MATERNAL DOSE: DURING 3RD TRIMESTER
     Route: 064
  3. GINGER. [Concomitant]
     Active Substance: GINGER
     Indication: FOETAL EXPOSURE DURING PREGNANCY
     Dosage: MATERNAL DOSE: 500 MG, PRN
     Route: 064
  4. TUMS [Concomitant]
     Active Substance: CALCIUM CARBONATE
     Indication: FOETAL EXPOSURE DURING PREGNANCY
     Dosage: MATERNAL DOSE: DURING 3RD TRIMESTER
     Route: 064
  5. ZITHROMAX [Concomitant]
     Active Substance: AZITHROMYCIN DIHYDRATE
     Indication: FOETAL EXPOSURE DURING PREGNANCY
     Dosage: MATERNAL DOSE: 1 G
     Route: 064
     Dates: start: 20160122, end: 20160122
  6. ROCEPHIN [Concomitant]
     Active Substance: CEFTRIAXONE SODIUM
     Indication: PRODUCT USED FOR UNKNOWN INDICATION
     Dosage: UNK
     Route: 065
  7. AMITRIPTYLINE [Concomitant]
     Active Substance: AMITRIPTYLINE
     Indication: FOETAL EXPOSURE DURING PREGNANCY
     Dosage: UNK
     Route: 064
  8. TYLENOL [Concomitant]
     Active Substance: ACETAMINOPHEN
     Indication: FOETAL EXPOSURE DURING PREGNANCY
     Dosage: MATERNAL DOSE: 650 MG, PRN (DURING 3RD TRIMESTER), 2-3 TABLETS
     Route: 064
  9. VITAMIN D [Concomitant]
     Active Substance: CHOLECALCIFEROL
     Indication: FOETAL EXPOSURE DURING PREGNANCY
     Dosage: UNK
     Route: 064
  10. VITAMIN B6 [Concomitant]
     Active Substance: PYRIDOXINE HYDROCHLORIDE
     Indication: FOETAL EXPOSURE DURING PREGNANCY
     Dosage: MATERNAL DOSE: 50 MG, PRN, (DURING 1ST TRIMESTER)
     Route: 064
  11. ZANTAC [Concomitant]
     Active Substance: RANITIDINE HYDROCHLORIDE
     Indication: FOETAL EXPOSURE DURING PREGNANCY
     Dosage: MATERNAL DOSE: 150 MG
     Route: 064
  12. UNISOM SLEEPTABS [Concomitant]
     Active Substance: DOXYLAMINE SUCCINATE
     Indication: FOETAL EXPOSURE DURING PREGNANCY
     Dosage: MATERNAL DOSE: 25 MG, PRN (DURING 2ND TRIMESTER)
     Route: 064
  13. GILENYA [Suspect]
     Active Substance: FINGOLIMOD HYDROCHLORIDE
     Indication: FOETAL EXPOSURE DURING PREGNANCY
     Dosage: MATERNAL DOSE: 0.5 MG, QD
     Route: 064
  14. PHENTERMINE. [Concomitant]
     Active Substance: PHENTERMINE
     Indication: FOETAL EXPOSURE DURING PREGNANCY
     Dosage: UNK
     Route: 064
  15. RITALIN [Concomitant]
     Active Substance: METHYLPHENIDATE HYDROCHLORIDE
     Indication: FOETAL EXPOSURE DURING PREGNANCY
     Dosage: UNK
     Route: 064

REACTIONS (21)
  - Blood pressure systolic increased [Unknown]
  - Grunting [Recovered/Resolved]
  - Viral infection [Recovered/Resolved with Sequelae]
  - Dyspnoea [Recovered/Resolved]
  - Bronchiolitis [Recovering/Resolving]
  - Pyrexia [Recovering/Resolving]
  - Bacterial infection [Recovered/Resolved with Sequelae]
  - Acute respiratory failure [Recovering/Resolving]
  - Respiratory disorder [Recovered/Resolved with Sequelae]
  - Feeling jittery [Unknown]
  - Foetal exposure during pregnancy [Unknown]
  - Neonatal hypoxia [Recovering/Resolving]
  - Cough [Recovering/Resolving]
  - White blood cell count increased [Recovered/Resolved]
  - Drug withdrawal syndrome neonatal [Recovered/Resolved]
  - Selective eating disorder [Recovering/Resolving]
  - Jaundice neonatal [Recovered/Resolved]
  - Acute respiratory distress syndrome [Recovering/Resolving]
  - Neonatal pneumonia [Recovered/Resolved]
  - Corona virus infection [Recovered/Resolved]
  - Human metapneumovirus test positive [Recovered/Resolved]

NARRATIVE: CASE EVENT DATE: 20160727
